FAERS Safety Report 5765420-1 (Version None)
Quarter: 2008Q2

REPORT INFORMATION
  Report Type: 
  Country: None (occurrence: None)
  Receive Date: 20080611
  Receipt Date: 20080611
  Transmission Date: 20081010
  Serious: Yes (Other)
  Sender: FDA-Public Use
  Company Number: A0732390A

PATIENT
  Age: 51 Year
  Sex: Female

DRUGS (1)
  1. ALLI [Suspect]
     Indication: DRUG USE FOR UNKNOWN INDICATION

REACTIONS (8)
  - ASTHMA [None]
  - BACK PAIN [None]
  - BALANCE DISORDER [None]
  - FIBROMYALGIA [None]
  - MIGRAINE [None]
  - MULTIPLE ALLERGIES [None]
  - NECK PAIN [None]
  - SURGERY [None]
